FAERS Safety Report 5175368-1 (Version None)
Quarter: 2006Q4

REPORT INFORMATION
  Report Type: 
  Country: None (occurrence: None)
  Receive Date: 20061215
  Receipt Date: 20061211
  Transmission Date: 20070319
  Serious: Yes (Death)
  Sender: FDA-Public Use
  Company Number: PHEH2006US15082

PATIENT
  Age: 63 Year
  Sex: Female

DRUGS (1)
  1. LAMISIL [Suspect]

REACTIONS (3)
  - HEPATIC FAILURE [None]
  - HEPATITIS TOXIC [None]
  - RENAL FAILURE ACUTE [None]
